FAERS Safety Report 5535890-2 (Version None)
Quarter: 2007Q4

REPORT INFORMATION
  Report Type: 
  Country: None (occurrence: None)
  Receive Date: 20071206
  Receipt Date: 20070620
  Transmission Date: 20080405
  Serious: Yes (Hospitalization)
  Sender: FDA-Public Use
  Company Number: US-AMGEN-STX228925

PATIENT
  Sex: Female

DRUGS (2)
  1. ENBREL [Suspect]
     Indication: PSORIATIC ARTHROPATHY
     Route: 058
     Dates: start: 20031009
  2. PLAQUENIL [Concomitant]
     Route: 065
     Dates: start: 20070101

REACTIONS (3)
  - PYREXIA [None]
  - SINUSITIS [None]
  - SKIN INFECTION [None]
